FAERS Safety Report 24168900 (Version 1)
Quarter: 2024Q3

REPORT INFORMATION
  Report Type: Report from Study
  Country: US (occurrence: None)
  Receive Date: 20240802
  Receipt Date: 20240802
  Transmission Date: 20241017
  Serious: Yes (Life-Threatening, Hospitalization)
  Sender: ASTRAZENECA
  Company Number: 2024A173529

PATIENT
  Sex: Male
  Weight: 85.3 kg

DRUGS (1)
  1. CALQUENCE [Suspect]
     Active Substance: ACALABRUTINIB
     Indication: Chronic lymphocytic leukaemia
     Route: 048
     Dates: start: 20240507

REACTIONS (5)
  - Road traffic accident [Unknown]
  - Skull fracture [Unknown]
  - Cerebral haemorrhage [Unknown]
  - Rib fracture [Unknown]
  - Shoulder fracture [Unknown]
